FAERS Safety Report 6609503-2 (Version None)
Quarter: 2010Q1

REPORT INFORMATION
  Report Type: 
  Country: None (occurrence: None)
  Receive Date: 20100224
  Receipt Date: 20100209
  Transmission Date: 20100710
  Serious: No
  Sender: FDA-Public Use
  Company Number: 008712

PATIENT
  Age: 81 Year
  Sex: Female
  Weight: 38.7 kg

DRUGS (8)
  1. PLETAL [Suspect]
     Indication: ARTERIAL OCCLUSIVE DISEASE
     Dosage: 100 MG, BID ORAL
     Route: 048
     Dates: start: 20100113, end: 20100127
  2. PREDNISOLONE [Concomitant]
  3. INDOMETHACIN [Concomitant]
  4. ALPRAZOLAM [Concomitant]
  5. MAGNESIUM OXIDE (MAGNESIUM OXIDE) [Concomitant]
  6. MARZULENE S (ELVOFLUTAMIDE, SODIUM GUALENATE) [Concomitant]
  7. FAMOTIDINE [Concomitant]
  8. NAUZELIN (DOMPERIDONE) [Concomitant]

REACTIONS (5)
  - BLOOD CREATININE INCREASED [None]
  - BLOOD GLUCOSE INCREASED [None]
  - BLOOD TRIGLYCERIDES INCREASED [None]
  - BLOOD UREA INCREASED [None]
  - RENAL IMPAIRMENT [None]
